FAERS Safety Report 6615901-3 (Version None)
Quarter: 2010Q1

REPORT INFORMATION
  Report Type: 
  Country: None (occurrence: None)
  Receive Date: 20100305
  Receipt Date: 20100225
  Transmission Date: 20100710
  Serious: Yes (Hospitalization)
  Sender: FDA-Public Use
  Company Number: US-ELI_LILLY_AND_COMPANY-US201002007270

PATIENT
  Sex: Female
  Weight: 102.49 kg

DRUGS (14)
  1. BYETTA [Suspect]
     Indication: TYPE 2 DIABETES MELLITUS
     Dosage: 5 UG, 2/D
     Route: 058
     Dates: start: 20061004, end: 20061113
  2. BYETTA [Suspect]
     Dosage: 10 UG, 2/D
     Route: 058
     Dates: start: 20061114, end: 20100201
  3. TENORMIN [Concomitant]
     Dosage: UNK, UNKNOWN
     Route: 048
  4. ULTRAM [Concomitant]
     Dosage: UNK, UNKNOWN
     Route: 048
  5. CYMBALTA [Concomitant]
     Dosage: UNK, UNKNOWN
     Route: 048
  6. ATIVAN [Concomitant]
     Dosage: UNK, UNKNOWN
     Route: 048
  7. SYNTHROID [Concomitant]
     Dosage: UNK, UNKNOWN
     Route: 048
  8. ALLEGRA [Concomitant]
     Dosage: UNK, UNKNOWN
     Route: 048
  9. CAPADEX [Concomitant]
     Dosage: UNK, UNKNOWN
     Route: 048
  10. PERCOCET [Concomitant]
     Dosage: UNK, UNKNOWN
     Route: 048
  11. PHENERGAN HCL [Concomitant]
     Dosage: UNK, UNKNOWN
     Route: 048
  12. AMBIEN [Concomitant]
     Dosage: UNK, UNKNOWN
     Route: 048
  13. GLUCOPHAGE [Concomitant]
     Dosage: UNK, UNKNOWN
     Route: 048
  14. NEURONTIN [Concomitant]
     Dosage: UNK, UNKNOWN
     Route: 048

REACTIONS (1)
  - PANCREATITIS [None]
